FAERS Safety Report 17915450 (Version 1)
Quarter: 2020Q2

REPORT INFORMATION
  Report Type: Spontaneous
  Country: SE (occurrence: SE)
  Receive Date: 20200619
  Receipt Date: 20200619
  Transmission Date: 20200714
  Serious: Yes (Other)
  Sender: FDA-Public Use
  Company Number: SE-TEVA-2020-SE-1787844

PATIENT
  Sex: Female

DRUGS (1)
  1. DOCETAXEL ACTAVIS [Suspect]
     Active Substance: DOCETAXEL
     Route: 042

REACTIONS (4)
  - Polyneuropathy [Unknown]
  - Eye irritation [Unknown]
  - Cognitive disorder [Unknown]
  - Myalgia [Unknown]
